FAERS Safety Report 16546934 (Version 1)
Quarter: 2019Q3

REPORT INFORMATION
  Report Type: Spontaneous
  Country: US (occurrence: US)
  Receive Date: 20190528
  Receipt Date: 20190528
  Transmission Date: 20191004
  Serious: No
  Sender: FDA-Public Use
  Company Number: None

PATIENT
  Age: 39 Year
  Sex: Female

DRUGS (1)
  1. LEUPROLIDE INJ 1MG/0.2 [Suspect]
     Active Substance: LEUPROLIDE
     Indication: INFERTILITY
     Route: 058
     Dates: start: 20190525

REACTIONS (2)
  - Poor quality product administered [None]
  - Product storage error [None]

NARRATIVE: CASE EVENT DATE: 20190527
